FAERS Safety Report 10254594 (Version 2)
Quarter: 2014Q3

REPORT INFORMATION
  Report Type: Report from Study
  Country: US (occurrence: US)
  Receive Date: 20140624
  Receipt Date: 20140828
  Transmission Date: 20150326
  Serious: Yes (Disabling, Other)
  Sender: FDA-Public Use
  Company Number: PHEH2014US012420

PATIENT
  Age: 76 Year
  Sex: Female
  Weight: 74 kg

DRUGS (6)
  1. AROMASIN [Concomitant]
     Active Substance: EXEMESTANE
     Indication: BREAST CANCER
     Dosage: 25 MG, DAILY
     Route: 048
     Dates: start: 20130818, end: 20131212
  2. METOPROLOL [Concomitant]
     Active Substance: METOPROLOL
     Indication: HYPERTENSION
     Dosage: 50 MG, QD
     Route: 048
  3. NATURAL VITAMIN D [Concomitant]
     Indication: VITAMIN D DEFICIENCY
     Dosage: 2000 U, QD
     Route: 048
  4. ENOXAPARIN SODIUM. [Suspect]
     Active Substance: ENOXAPARIN SODIUM
     Dosage: 120 MG, ONCE DAILY
     Route: 058
  5. SIMVASTATIN. [Concomitant]
     Active Substance: SIMVASTATIN
     Indication: BLOOD CHOLESTEROL INCREASED
     Dosage: 20 MG, QD
     Route: 048
  6. AFINITOR [Suspect]
     Active Substance: EVEROLIMUS
     Indication: BREAST CANCER
     Dosage: 10 MG, DAILY
     Route: 048
     Dates: start: 20130910, end: 20131025

REACTIONS (7)
  - Cardiac disorder [Unknown]
  - Nervous system disorder [Unknown]
  - Dehydration [Recovered/Resolved]
  - Fatigue [Recovered/Resolved]
  - Diarrhoea [Recovered/Resolved]
  - Amnesia [Recovered/Resolved]
  - Vena cava thrombosis [Recovered/Resolved]

NARRATIVE: CASE EVENT DATE: 20131001
